FAERS Safety Report 24175192 (Version 6)
Quarter: 2025Q1

REPORT INFORMATION
  Report Type: Report from Study
  Country: US (occurrence: US)
  Receive Date: 20240805
  Receipt Date: 20250312
  Transmission Date: 20250408
  Serious: Yes (Other)
  Sender: NOVARTIS
  Company Number: US-002147023-NVSC2024US125735

PATIENT
  Sex: Female

DRUGS (1)
  1. KESIMPTA [Suspect]
     Active Substance: OFATUMUMAB
     Indication: Product used for unknown indication
     Route: 065

REACTIONS (10)
  - Neuropathy peripheral [Unknown]
  - Injection site discomfort [Unknown]
  - Tremor [Unknown]
  - Drug ineffective [Unknown]
  - Muscle tightness [Unknown]
  - Muscle spasms [Unknown]
  - Fatigue [Unknown]
  - Influenza [Unknown]
  - Nasopharyngitis [Unknown]
  - Stress [Unknown]
